FAERS Safety Report 8092511-5 (Version None)
Quarter: 2012Q1

REPORT INFORMATION
  Report Type: 
  Country: None (occurrence: None)
  Receive Date: 20120128
  Receipt Date: 20110829
  Transmission Date: 20120608
  Serious: No
  Sender: FDA-Public Use
  Company Number: US-ABBOTT-11P-163-0849979-00

PATIENT
  Sex: Female
  Weight: 81.72 kg

DRUGS (4)
  1. EFFEXOR [Concomitant]
     Indication: DEPRESSION
  2. ASPIRIN [Concomitant]
     Indication: ARTHRITIS
     Dosage: AS NEEDED   2 IN 1 DAY
  3. TERAZEPAM [Concomitant]
     Indication: INSOMNIA
     Dosage: AS NEEDED
  4. HUMIRA [Suspect]
     Indication: RHEUMATOID ARTHRITIS
     Route: 058
     Dates: start: 20100101

REACTIONS (4)
  - DRUG DOSE OMISSION [None]
  - ARTHRALGIA [None]
  - ARTHRITIS [None]
  - INJECTION SITE PAIN [None]
